FAERS Safety Report 4745233-X (Version None)
Quarter: 2005Q3

REPORT INFORMATION
  Report Type: 
  Country: None (occurrence: None)
  Receive Date: 20050812
  Receipt Date: 20050726
  Transmission Date: 20060218
  Serious: Yes (Hospitalization)
  Sender: FDA-Public Use
  Company Number: 216744

PATIENT
  Age: 60 Year
  Sex: Female
  Weight: 81.5 kg

DRUGS (1)
  1. AVASTIN [Suspect]
     Indication: COLORECTAL CANCER METASTATIC
     Dosage: 435 MG INTRAVENOUS
     Route: 042
     Dates: start: 20050701

REACTIONS (1)
  - GASTRITIS HAEMORRHAGIC [None]
